FAERS Safety Report 9188018 (Version 1)
Quarter: 2013Q1

REPORT INFORMATION
  Report Type: Spontaneous
  Country: US (occurrence: US)
  Receive Date: 20130325
  Receipt Date: 20130325
  Transmission Date: 20140127
  Serious: No
  Sender: FDA-Public Use
  Company Number: US-MYLANLABS-2012S1025549

PATIENT
  Age: 39 Year
  Sex: Female
  Weight: 90.72 kg

DRUGS (3)
  1. FENTANYL TRANSDERMAL SYSTEM [Suspect]
     Indication: BACK PAIN
     Dosage: CHANGES Q. 72 HOURS.
     Route: 062
     Dates: start: 2011, end: 20121204
  2. PERCOCET [Concomitant]
     Indication: BREAKTHROUGH PAIN
     Dosage: 5MG/325MG FOR YEARS
  3. AVASTATIN [Concomitant]
     Indication: BREAST CANCER
     Route: 042
     Dates: start: 201110

REACTIONS (1)
  - Drug screen negative [Recovered/Resolved]
